FAERS Safety Report 7127977-8 (Version None)
Quarter: 2010Q4

REPORT INFORMATION
  Report Type: 
  Country: None (occurrence: None)
  Receive Date: 20101130
  Receipt Date: 20101119
  Transmission Date: 20110411
  Serious: Yes (Hospitalization)
  Sender: FDA-Public Use
  Company Number: FR-JNJFOC-20071200621

PATIENT
  Age: 84 Year
  Sex: Female
  Weight: 78 kg

DRUGS (3)
  1. INFLIXIMAB [Suspect]
     Indication: CROHN'S DISEASE
     Route: 042
  2. INFLIXIMAB [Suspect]
     Route: 042
  3. INFLIXIMAB [Suspect]
     Route: 042

REACTIONS (8)
  - CEREBRAL ATROPHY [None]
  - CYTOLYTIC HEPATITIS [None]
  - DRUG INEFFECTIVE [None]
  - ILEUS [None]
  - INFLAMMATION [None]
  - NEPHRITIS [None]
  - PLEURISY [None]
  - RENAL FAILURE [None]
